FAERS Safety Report 5839791-1 (Version None)
Quarter: 2008Q3

REPORT INFORMATION
  Report Type: 
  Country: None (occurrence: None)
  Receive Date: 20080807
  Receipt Date: 20080729
  Transmission Date: 20090109
  Serious: Yes (Other)
  Sender: FDA-Public Use
  Company Number: 2008AL008651

PATIENT
  Age: 79 Year
  Sex: Female

DRUGS (2)
  1. DIGOXIN [Suspect]
     Indication: CARDIAC DISORDER
     Dosage: 1 TAB, QOD, PO
     Route: 048
  2. DIGOXIN [Suspect]
     Indication: CARDIAC DISORDER
     Dosage: 1.5 TAB, QOD, PO
     Route: 048

REACTIONS (4)
  - DYSGEUSIA [None]
  - DYSPNOEA [None]
  - MALAISE [None]
  - STOMACH DISCOMFORT [None]
